FAERS Safety Report 7466514-5 (Version None)
Quarter: 2011Q1

REPORT INFORMATION
  Report Type: 
  Country: None (occurrence: None)
  Receive Date: 20110302
  Receipt Date: 20100930
  Transmission Date: 20110831
  Serious: Yes (Hospitalization, Other)
  Sender: FDA-Public Use
  Company Number: 163-21880-10062903

PATIENT
  Age: 84 Year
  Sex: Male

DRUGS (1)
  1. REVLIMID [Suspect]
     Indication: MYELODYSPLASTIC SYNDROME
     Dosage: 10 MG, DAILY X 28 DAYS, PO
     Route: 048
     Dates: start: 20100615

REACTIONS (12)
  - FULL BLOOD COUNT DECREASED [None]
  - EYE DISCHARGE [None]
  - EYELID PTOSIS [None]
  - ALOPECIA [None]
  - PLATELET COUNT DECREASED [None]
  - DIZZINESS [None]
  - PRURITUS [None]
  - MUSCULOSKELETAL PAIN [None]
  - CYST [None]
  - RASH [None]
  - OCULAR HYPERAEMIA [None]
  - FATIGUE [None]
